FAERS Safety Report 14051874 (Version 11)
Quarter: 2018Q2

REPORT INFORMATION
  Report Type: Spontaneous
  Country: US (occurrence: US)
  Receive Date: 20171006
  Receipt Date: 20180426
  Transmission Date: 20180711
  Serious: No
  Sender: FDA-Public Use
  Company Number: US-PFIZER INC-2017428642

PATIENT
  Age: 56 Year
  Sex: Male
  Weight: 117 kg

DRUGS (3)
  1. SUTENT [Suspect]
     Active Substance: SUNITINIB MALATE
     Dosage: 37.5 MG, CYCLIC, (28 DAYS ON/ 14 DAYS OFF)
     Dates: start: 20180223
  2. SUTENT [Suspect]
     Active Substance: SUNITINIB MALATE
     Dosage: 50 MG, CYCLIC (28 DAYS ON/14 DAYS OFF)
     Dates: start: 20180129, end: 2018
  3. SUTENT [Suspect]
     Active Substance: SUNITINIB MALATE
     Indication: RENAL CANCER
     Dosage: 50 MG, CYCLIC (28 DAYS ON/14 DAYS OFF)
     Dates: start: 20170920, end: 20171128

REACTIONS (15)
  - Dysgeusia [Recovering/Resolving]
  - Palmar-plantar erythrodysaesthesia syndrome [Unknown]
  - Blister [Unknown]
  - Gait inability [Unknown]
  - Hyperkeratosis [Unknown]
  - Hyperaesthesia [Unknown]
  - Pain in extremity [Unknown]
  - Decreased appetite [Unknown]
  - Nasopharyngitis [Unknown]
  - Malaise [Unknown]
  - Fatigue [Unknown]
  - Weight decreased [Unknown]
  - Skin reaction [Unknown]
  - Pain [Unknown]
  - Rash [Unknown]

NARRATIVE: CASE EVENT DATE: 2017
